FAERS Safety Report 19856110 (Version 1)
Quarter: 2021Q3

REPORT INFORMATION
  Report Type: Spontaneous
  Country: GB (occurrence: GB)
  Receive Date: 20210920
  Receipt Date: 20210920
  Transmission Date: 20211014
  Serious: Yes (Disabling)
  Sender: FDA-Public Use
  Company Number: None

PATIENT
  Age: 29 Year
  Sex: Female
  Weight: 75 kg

DRUGS (5)
  1. EUMOVATE [Suspect]
     Active Substance: CLOBETASONE BUTYRATE
  2. FLUOXETINE [Concomitant]
     Active Substance: FLUOXETINE HYDROCHLORIDE
  3. KALMS [Concomitant]
     Active Substance: HERBALS
  4. DIPROVATE [Suspect]
     Active Substance: BETAMETHASONE DIPROPIONATE
  5. BETNOVATE [Suspect]
     Active Substance: BETAMETHASONE
     Indication: ECZEMA

REACTIONS (2)
  - Withdrawal syndrome [None]
  - Skin disorder [None]

NARRATIVE: CASE EVENT DATE: 20210314
